FAERS Safety Report 9225724 (Version 1)
Quarter: 2013Q2

REPORT INFORMATION
  Report Type: Spontaneous
  Country: FR (occurrence: FR)
  Receive Date: 20130411
  Receipt Date: 20130411
  Transmission Date: 20140414
  Serious: Yes (Hospitalization)
  Sender: FDA-Public Use
  Company Number: FR-GLAXOSMITHKLINE-B0879964A

PATIENT
  Age: 26 Year
  Sex: Female

DRUGS (11)
  1. ARIXTRA [Suspect]
     Indication: BUDD-CHIARI SYNDROME
     Dosage: 7.5MG PER DAY
     Route: 058
     Dates: start: 20130227, end: 20130312
  2. CEFAZOLINE [Suspect]
     Indication: PRODUCT USED FOR UNKNOWN INDICATION
     Dosage: 1G TWICE PER DAY
     Route: 042
     Dates: start: 20130306, end: 20130307
  3. VENOFER [Suspect]
     Indication: PRODUCT USED FOR UNKNOWN INDICATION
     Dosage: 200MG SINGLE DOSE
     Route: 042
     Dates: start: 20130307, end: 20130307
  4. LASILIX [Concomitant]
     Dates: start: 20121123, end: 20130306
  5. DIPRIVAN [Concomitant]
     Indication: GENERAL ANAESTHESIA
     Dates: start: 20130306, end: 20130306
  6. SUFENTA [Concomitant]
     Indication: GENERAL ANAESTHESIA
     Dates: start: 20130306, end: 20130306
  7. MIVACRON [Concomitant]
     Indication: GENERAL ANAESTHESIA
     Dates: start: 20130306, end: 20130306
  8. XYLOCAINE [Concomitant]
     Indication: GENERAL ANAESTHESIA
     Dates: start: 20130306, end: 20130306
  9. PERFALGAN [Concomitant]
     Indication: ANALGESIC THERAPY
     Dates: start: 20130306
  10. ACUPAN [Concomitant]
     Indication: ANALGESIC THERAPY
     Dates: start: 20130306
  11. PREVISCAN [Concomitant]
     Dates: end: 201302

REACTIONS (8)
  - Agranulocytosis [Recovered/Resolved]
  - Pyrexia [Unknown]
  - Marrow hyperplasia [Unknown]
  - Myeloid maturation arrest [Unknown]
  - Off label use [Unknown]
  - Ascites [None]
  - Portal hypertension [None]
  - Hyponatraemia [None]
